FAERS Safety Report 13713485 (Version 1)
Quarter: 2017Q3

REPORT INFORMATION
  Report Type: Spontaneous
  Country: US (occurrence: US)
  Receive Date: 20170704
  Receipt Date: 20170704
  Transmission Date: 20171127
  Serious: No
  Sender: FDA-Public Use
  Company Number: US-ALKABELLO-2017AA002176

PATIENT
  Sex: Female

DRUGS (1)
  1. GRASTEK [Suspect]
     Active Substance: PHLEUM PRATENSE POLLEN
     Indication: SEASONAL ALLERGY
     Dosage: DOSE UNIT:2800 BIOEQUIVALENT ALLERGENIC UNIT (S)
     Route: 060
     Dates: start: 20170607

REACTIONS (1)
  - Throat tightness [Unknown]

NARRATIVE: CASE EVENT DATE: 20170607
